FAERS Safety Report 14447469 (Version 1)
Quarter: 2018Q1

REPORT INFORMATION
  Report Type: Spontaneous
  Country: US (occurrence: US)
  Receive Date: 20180126
  Receipt Date: 20180126
  Transmission Date: 20180509
  Serious: No
  Sender: FDA-Public Use
  Company Number: US-ABBVIE-17K-163-2122199-00

PATIENT
  Age: 20 Year
  Sex: Male
  Weight: 70.37 kg

DRUGS (1)
  1. HUMIRA [Suspect]
     Active Substance: ADALIMUMAB
     Indication: COLITIS ULCERATIVE
     Route: 058
     Dates: start: 201705

REACTIONS (2)
  - Scratch [Recovering/Resolving]
  - Wound infection [Recovering/Resolving]

NARRATIVE: CASE EVENT DATE: 201710
